FAERS Safety Report 6680010-4 (Version None)
Quarter: 2010Q2

REPORT INFORMATION
  Report Type: 
  Country: None (occurrence: None)
  Receive Date: 20100413
  Receipt Date: 20100401
  Transmission Date: 20101027
  Serious: Yes (Congenital Anomaly)
  Sender: FDA-Public Use
  Company Number: GB-PFIZER INC-2010041569

PATIENT
  Sex: Female

DRUGS (1)
  1. CABERGOLINE [Suspect]
     Indication: PROLACTINOMA
     Dosage: 0.5 MG, TWICE WEEKLY
     Route: 064

REACTIONS (4)
  - CONGENITAL PULMONARY VALVE ATRESIA [None]
  - DRUG EXPOSURE DURING PREGNANCY [None]
  - TERATOGENICITY [None]
  - VENTRICULAR SEPTAL DEFECT [None]
